FAERS Safety Report 8132714-4 (Version None)
Quarter: 2012Q1

REPORT INFORMATION
  Report Type: 
  Country: None (occurrence: None)
  Receive Date: 20120213
  Receipt Date: 20120210
  Transmission Date: 20120608
  Serious: Yes (Death, Hospitalization, Other)
  Sender: FDA-Public Use
  Company Number: BR-PFIZER INC-2012019438

PATIENT
  Age: 72 Year
  Sex: Male
  Weight: 60 kg

DRUGS (2)
  1. SUTENT [Suspect]
     Indication: METASTATIC RENAL CELL CARCINOMA
     Dosage: 25MG (ONE TABLET), 1X/DAY
     Route: 048
     Dates: start: 20111229
  2. GALVUS [Concomitant]
     Indication: DIABETES MELLITUS

REACTIONS (12)
  - GENERAL PHYSICAL HEALTH DETERIORATION [None]
  - FUNCTIONAL GASTROINTESTINAL DISORDER [None]
  - NAUSEA [None]
  - MULTI-ORGAN FAILURE [None]
  - DISORIENTATION [None]
  - DECREASED APPETITE [None]
  - CEREBROVASCULAR ACCIDENT [None]
  - DIABETES MELLITUS [None]
  - DIARRHOEA [None]
  - ORAL CANDIDIASIS [None]
  - DEHYDRATION [None]
  - PERIPHERAL CIRCULATORY FAILURE [None]
